FAERS Safety Report 10143874 (Version 1)
Quarter: 2014Q2

REPORT INFORMATION
  Report Type: Spontaneous
  Country: IT (occurrence: IT)
  Receive Date: 20140430
  Receipt Date: 20140430
  Transmission Date: 20141212
  Serious: Yes (Other)
  Sender: FDA-Public Use
  Company Number: IT-TEVA-477597ISR

PATIENT
  Age: 82 Year
  Sex: Male

DRUGS (7)
  1. OLANZAPINA TEVA [Suspect]
     Indication: SENILE DEMENTIA
     Dosage: 2 DOSAGE FORMS DAILY;
     Route: 048
     Dates: start: 20140404, end: 20140406
  2. AVODART [Concomitant]
  3. LASIX [Concomitant]
  4. CARDURA [Concomitant]
  5. ZYLORIC [Concomitant]
  6. TIKLID [Concomitant]
  7. ANGIOFLUX [Concomitant]

REACTIONS (3)
  - Insomnia [Recovered/Resolved]
  - Irritability [Recovered/Resolved]
  - Decreased appetite [Recovered/Resolved]
